FAERS Safety Report 4593800-9 (Version None)
Quarter: 2005Q1

REPORT INFORMATION
  Report Type: 
  Country: None (occurrence: None)
  Receive Date: 20050301
  Receipt Date: 20050222
  Transmission Date: 20050727
  Serious: Yes (Hospitalization, Other)
  Sender: FDA-Public Use
  Company Number: US-BRISTOL-MYERS SQUIBB COMPANY-12872438

PATIENT
  Age: 31 Year
  Sex: Male
  Weight: 79 kg

DRUGS (2)
  1. CETUXIMAB [Suspect]
     Indication: PANCREATIC CARCINOMA
     Dosage: INITIATED ON 22-JUN-04. (TD ADMIN THIS COURSE=510 MG). 6 COURSES TO DATE.
     Route: 042
     Dates: start: 20041122, end: 20041122
  2. GEMCITABINE [Suspect]
     Indication: PANCREATIC CARCINOMA
     Dosage: INITIATED ON 22-JUN-04. (TD ADMIN THIS COURSE=3156 MG). 6 COURSES TO DATE.
     Route: 042
     Dates: start: 20041122, end: 20041122

REACTIONS (9)
  - BLOOD CREATININE INCREASED [None]
  - DYSPNOEA [None]
  - HAEMOGLOBIN DECREASED [None]
  - HAEMOLYSIS [None]
  - HYPERBILIRUBINAEMIA [None]
  - HYPERTENSION [None]
  - PLATELET COUNT DECREASED [None]
  - RENAL FAILURE [None]
  - THROMBOTIC MICROANGIOPATHY [None]
